FAERS Safety Report 17817821 (Version 2)
Quarter: 2020Q3

REPORT INFORMATION
  Report Type: Spontaneous
  Country: ES (occurrence: ES)
  Receive Date: 20200522
  Receipt Date: 20200702
  Transmission Date: 20201102
  Serious: Yes (Life-Threatening, Other)
  Sender: FDA-Public Use
  Company Number: NVSC2020ES139501

PATIENT
  Age: 44 Year
  Sex: Male
  Weight: 74 kg

DRUGS (1)
  1. TACROLIMUS. [Suspect]
     Active Substance: TACROLIMUS
     Indication: IMMUNOSUPPRESSION
     Dosage: UNK
     Route: 048
     Dates: start: 20180123

REACTIONS (6)
  - Cholestasis [Recovering/Resolving]
  - Cell death [Recovering/Resolving]
  - Transaminases abnormal [Unknown]
  - Hypertension [Not Recovered/Not Resolved]
  - Transplant rejection [Unknown]
  - Tremor [Recovered/Resolved]

NARRATIVE: CASE EVENT DATE: 20180406
